FAERS Safety Report 10522866 (Version 2)
Quarter: 2014Q4

REPORT INFORMATION
  Report Type: Spontaneous
  Country: US (occurrence: US)
  Receive Date: 20141016
  Receipt Date: 20141016
  Transmission Date: 20150528
  Serious: Yes (Hospitalization, Other)
  Sender: FDA-Public Use
  Company Number: US-GLAXOSMITHKLINE-A0870844A

PATIENT
  Sex: Female

DRUGS (2)
  1. AVANDARYL [Suspect]
     Active Substance: GLIMEPIRIDE\ROSIGLITAZONE MALEATE
     Indication: DIABETES MELLITUS
     Dosage: 4/4
     Dates: start: 20080321, end: 20080323
  2. AVANDIA [Suspect]
     Active Substance: ROSIGLITAZONE MALEATE
     Indication: DIABETES MELLITUS
     Dosage: 8 MG, UNK
     Route: 048
     Dates: start: 20040127, end: 20080323

REACTIONS (7)
  - Coronary artery disease [Unknown]
  - Pulmonary oedema [Unknown]
  - Respiratory failure [Unknown]
  - Myocardial infarction [Not Recovered/Not Resolved]
  - Pleural effusion [Unknown]
  - Cardiac failure congestive [Unknown]
  - Hypertensive heart disease [Unknown]
